FAERS Safety Report 10159626 (Version 1)
Quarter: 2014Q2

REPORT INFORMATION
  Report Type: Spontaneous
  Country: US (occurrence: US)
  Receive Date: 20140508
  Receipt Date: 20140508
  Transmission Date: 20141212
  Serious: No
  Sender: FDA-Public Use
  Company Number: US-GLAXOSMITHKLINE-A1017727A

PATIENT
  Sex: Female

DRUGS (6)
  1. TYKERB [Suspect]
     Indication: BREAST CANCER
     Dosage: 1250MG PER DAY
     Route: 048
     Dates: start: 20120910
  2. IMODIUM [Concomitant]
  3. ESCITALOPRAM [Concomitant]
  4. XELODA [Concomitant]
  5. PROCHLORPERAZINE [Concomitant]
  6. TYLENOL [Concomitant]

REACTIONS (4)
  - Fatigue [Unknown]
  - Mood swings [Unknown]
  - Diarrhoea [Unknown]
  - Ingrowing nail [Unknown]
